FAERS Safety Report 9706847 (Version 2)
Quarter: 2014Q1

REPORT INFORMATION
  Report Type: Spontaneous
  Country: US (occurrence: US)
  Receive Date: 20131125
  Receipt Date: 20140129
  Transmission Date: 20141002
  Serious: No
  Sender: FDA-Public Use
  Company Number: US-009507513-1311USA007472

PATIENT
  Age: 52 Year
  Sex: Male
  Weight: 90.23 kg

DRUGS (7)
  1. ISENTRESS [Suspect]
     Indication: HIV INFECTION
     Dosage: 400 MG, BID
     Route: 048
     Dates: start: 20130808, end: 2013
  2. ISENTRESS [Suspect]
     Dosage: 400 MG, ONCE DAILY
     Route: 048
     Dates: start: 2013, end: 20131107
  3. PREZISTA [Concomitant]
     Dosage: UNK
  4. RITONAVIR [Concomitant]
     Dosage: UNK
  5. CALCIUM (UNSPECIFIED) [Concomitant]
     Dosage: UNK
  6. TYLENOL [Concomitant]
     Dosage: UNK
  7. IBUPROFEN [Concomitant]
     Dosage: UNK

REACTIONS (3)
  - Asthenia [Recovering/Resolving]
  - Fatigue [Recovered/Resolved]
  - Inappropriate schedule of drug administration [Unknown]
